FAERS Safety Report 12518355 (Version 1)
Quarter: 2016Q2

REPORT INFORMATION
  Report Type: Report from Study
  Country: US (occurrence: US)
  Receive Date: 20160630
  Receipt Date: 20160630
  Transmission Date: 20160815
  Serious: Yes (Other)
  Sender: FDA-Public Use
  Company Number: US-JNJFOC-20160621745

PATIENT
  Age: 15 Year
  Sex: Female

DRUGS (4)
  1. REMICADE [Suspect]
     Active Substance: INFLIXIMAB
     Indication: CROHN^S DISEASE
     Dosage: DOSE: 300 UNITS UNSPECIFIED
     Route: 042
     Dates: start: 201512
  2. REMICADE [Suspect]
     Active Substance: INFLIXIMAB
     Indication: CROHN^S DISEASE
     Dosage: DOSE: 400 UNITS UNSPECIFIED
     Route: 042
     Dates: start: 201502, end: 201512
  3. OMEPRAZOLE. [Suspect]
     Active Substance: OMEPRAZOLE
     Indication: COLITIS
     Route: 065
     Dates: start: 201511
  4. REMICADE [Suspect]
     Active Substance: INFLIXIMAB
     Indication: CROHN^S DISEASE
     Dosage: DOSE: 300 UNITS UNSPECIFIED
     Route: 042
     Dates: start: 201310, end: 201502

REACTIONS (11)
  - Colitis [Unknown]
  - Infection [Unknown]
  - Intestinal obstruction [Recovered/Resolved]
  - Abnormal loss of weight [Unknown]
  - Crohn^s disease [Unknown]
  - Drug level above therapeutic [Recovering/Resolving]
  - Arthralgia [Unknown]
  - Osteoma [Not Recovered/Not Resolved]
  - Fatigue [Not Recovered/Not Resolved]
  - Irritable bowel syndrome [Unknown]
  - Ovarian cyst [Recovered/Resolved]

NARRATIVE: CASE EVENT DATE: 2014
